FAERS Safety Report 6638032-5 (Version None)
Quarter: 2010Q1

REPORT INFORMATION
  Report Type: 
  Country: None (occurrence: None)
  Receive Date: 20100317
  Receipt Date: 20100305
  Transmission Date: 20100710
  Serious: Yes (Hospitalization)
  Sender: FDA-Public Use
  Company Number: JP-PFIZER INC-2010030413

PATIENT
  Age: 56 Year
  Sex: Female
  Weight: 45.4 kg

DRUGS (10)
  1. AZULFIDINE [Suspect]
     Indication: RHEUMATOID ARTHRITIS
     Dosage: FREQUENCY: 2X/DAY,
     Route: 048
     Dates: start: 20100104, end: 20100214
  2. BASEN [Concomitant]
     Route: 048
  3. AMARYL [Concomitant]
     Route: 048
  4. VALSARTAN [Concomitant]
     Route: 048
  5. AMLODIPINE [Concomitant]
     Route: 048
  6. ALENDRONATE SODIUM [Concomitant]
     Route: 048
  7. LOXOPROFEN SODIUM [Concomitant]
     Route: 048
  8. GLORIAMIN [Concomitant]
     Route: 048
  9. PREDNISOLONE [Concomitant]
     Route: 048
  10. PREDNISOLONE [Concomitant]
     Route: 048

REACTIONS (1)
  - DRUG ERUPTION [None]
